FAERS Safety Report 16386347 (Version 3)
Quarter: 2020Q1

REPORT INFORMATION
  Report Type: Spontaneous
  Country: AU (occurrence: AU)
  Receive Date: 20190603
  Receipt Date: 20200216
  Transmission Date: 20200409
  Serious: Yes (Other)
  Sender: FDA-Public Use
  Company Number: AU-CELLTRION INC.-2019AU021554

PATIENT

DRUGS (2)
  1. 6 MP [Concomitant]
     Active Substance: MERCAPTOPURINE
     Dosage: UNK
  2. INFLIXIMAB PFIZER (UNKNOWN) [Suspect]
     Active Substance: INFLIXIMAB
     Indication: CROHN^S DISEASE
     Dosage: UNK

REACTIONS (3)
  - Therapeutic response shortened [Unknown]
  - Drug level decreased [Unknown]
  - Asthenia [Unknown]
